FAERS Safety Report 26039848 (Version 2)
Quarter: 2025Q4

REPORT INFORMATION
  Report Type: Spontaneous
  Country: US (occurrence: US)
  Receive Date: 20251113
  Receipt Date: 20251221
  Transmission Date: 20260118
  Serious: Yes (Hospitalization, Other)
  Sender: SANOFI AVENTIS
  Company Number: US-SA-2025SA336249

PATIENT
  Age: 65 Year
  Sex: Male

DRUGS (2)
  1. DUPIXENT [Suspect]
     Active Substance: DUPILUMAB
     Indication: Eczema
     Dosage: 600 MG, 1X
     Route: 058
     Dates: start: 20250427, end: 20250427
  2. DUPIXENT [Suspect]
     Active Substance: DUPILUMAB
     Indication: Dermatitis atopic
     Dosage: 300 MG,QOW
     Route: 058
     Dates: start: 202505

REACTIONS (4)
  - Femur fracture [Recovering/Resolving]
  - Fall [Unknown]
  - Seizure [Recovering/Resolving]
  - Alcohol detoxification [Unknown]

NARRATIVE: CASE EVENT DATE: 20250101
